FAERS Safety Report 8177821-5 (Version None)
Quarter: 2012Q1

REPORT INFORMATION
  Report Type: 
  Country: None (occurrence: None)
  Receive Date: 20120301
  Receipt Date: 20120113
  Transmission Date: 20120608
  Serious: Yes (Hospitalization, Other)
  Sender: FDA-Public Use
  Company Number: US-ROCHE-788881

PATIENT
  Sex: Male
  Weight: 79.45 kg

DRUGS (7)
  1. ADVAIR DISKUS 100/50 [Concomitant]
     Dosage: DOSE:250/50
  2. ALBUTEROL [Concomitant]
  3. XANAX [Concomitant]
     Dosage: DOSE: 0.5
  4. ACCUTANE [Suspect]
     Indication: ACNE CYSTIC
     Route: 065
     Dates: start: 19860101, end: 19890101
  5. ACCUTANE [Suspect]
     Route: 065
     Dates: start: 20021024, end: 20030101
  6. NEXIUM [Concomitant]
  7. REGLAN [Concomitant]
     Dosage: DOSE: 10

REACTIONS (13)
  - BRONCHOSPASM [None]
  - MOOD SWINGS [None]
  - DEPRESSION [None]
  - INTESTINAL HAEMORRHAGE [None]
  - IRRITABLE BOWEL SYNDROME [None]
  - COLITIS ULCERATIVE [None]
  - GASTROOESOPHAGEAL REFLUX DISEASE [None]
  - DERMATITIS [None]
  - ACNE [None]
  - RASH [None]
  - LIP DRY [None]
  - EPISTAXIS [None]
  - DRY SKIN [None]
